FAERS Safety Report 26114324 (Version 1)
Quarter: 2025Q4

REPORT INFORMATION
  Report Type: Spontaneous
  Country: IL (occurrence: IL)
  Receive Date: 20251202
  Receipt Date: 20251202
  Transmission Date: 20260118
  Serious: Yes (Hospitalization)
  Sender: NOVO NORDISK
  Company Number: IL-NOVOPROD-1574572

PATIENT
  Age: 37 Year
  Sex: Female

DRUGS (2)
  1. SEMAGLUTIDE [Suspect]
     Active Substance: SEMAGLUTIDE
     Indication: Product used for unknown indication
     Dosage: 7 ML (CONCENTRATION 5MG/0.5ML = 70 MG OR ABOUT SIX MONTHS WORTH OF WEEKLY INJECTIONS
  2. ONDANSETRON [Suspect]
     Active Substance: ONDANSETRON
     Indication: Product used for unknown indication
     Dosage: 20 TABLETS OF 4MG (80 MG)

REACTIONS (2)
  - Suicide attempt [Unknown]
  - Intentional overdose [Unknown]
